FAERS Safety Report 7078919-5 (Version None)
Quarter: 2010Q4

REPORT INFORMATION
  Report Type: 
  Country: None (occurrence: None)
  Receive Date: 20101102
  Receipt Date: 20101022
  Transmission Date: 20110411
  Serious: Yes (Other)
  Sender: FDA-Public Use
  Company Number: US-PFIZER INC-2010135435

PATIENT

DRUGS (2)
  1. GEODON [Suspect]
     Dosage: 60 MG PER DAY
  2. FOCALIN [Suspect]
     Dosage: UNK

REACTIONS (1)
  - DYSTONIA [None]
